FAERS Safety Report 5720776-0 (Version None)
Quarter: 2008Q2

REPORT INFORMATION
  Report Type: 
  Country: None (occurrence: None)
  Receive Date: 20080429
  Receipt Date: 20080423
  Transmission Date: 20081010
  Serious: Yes (Other)
  Sender: FDA-Public Use
  Company Number: PHBS2007BE14850

PATIENT
  Age: 40 Year
  Sex: Male

DRUGS (1)
  1. TEGRETOL [Suspect]
     Indication: POST-TRAUMATIC EPILEPSY

REACTIONS (2)
  - CONGENITAL CYSTIC KIDNEY DISEASE [None]
  - STATUS EPILEPTICUS [None]
